FAERS Safety Report 4882386-7 (Version None)
Quarter: 2006Q1

REPORT INFORMATION
  Report Type: 
  Country: None (occurrence: None)
  Receive Date: 20060117
  Receipt Date: 20031124
  Transmission Date: 20060701
  Serious: Yes (Hospitalization)
  Sender: FDA-Public Use
  Company Number: FR-ABBOTT-03P-056-0242144-00

PATIENT
  Age: 79 Year
  Sex: Female

DRUGS (7)
  1. DEPACON [Suspect]
     Indication: DRUG USE FOR UNKNOWN INDICATION
     Route: 042
     Dates: start: 20030912, end: 20031002
  2. DEPACON [Suspect]
  3. AMIKACIN [Suspect]
     Indication: DRUG USE FOR UNKNOWN INDICATION
     Route: 042
     Dates: start: 20030927, end: 20031002
  4. VANCOMYCIN HYDROCHLORIDE [Suspect]
     Indication: DRUG USE FOR UNKNOWN INDICATION
     Route: 042
     Dates: start: 20030927, end: 20031002
  5. PIP/TAZO [Suspect]
     Indication: DRUG USE FOR UNKNOWN INDICATION
     Route: 042
     Dates: start: 20030927, end: 20031002
  6. VALPROATE SODIUM [Concomitant]
     Indication: DRUG USE FOR UNKNOWN INDICATION
     Route: 048
     Dates: start: 20030910, end: 20030912
  7. CLINDAMYCIN PHOSPHATE [Concomitant]
     Indication: DRUG USE FOR UNKNOWN INDICATION
     Route: 030
     Dates: start: 20030928, end: 20031103

REACTIONS (6)
  - ENCEPHALOPATHY [None]
  - LEUKODYSTROPHY [None]
  - MOTOR DYSFUNCTION [None]
  - MUTISM [None]
  - STAPHYLOCOCCAL BACTERAEMIA [None]
  - UNEVALUABLE EVENT [None]
